FAERS Safety Report 9665287 (Version 4)
Quarter: 2013Q4

REPORT INFORMATION
  Report Type: Spontaneous
  Country: US (occurrence: US)
  Receive Date: 20131101
  Receipt Date: 20131223
  Transmission Date: 20140711
  Serious: Yes (Hospitalization)
  Sender: FDA-Public Use
  Company Number: US-CELGENEUS-163-21660-13102866

PATIENT
  Age: 73 Year
  Sex: Female
  Weight: 74.46 kg

DRUGS (2)
  1. ABRAXANE [Suspect]
     Indication: PANCREATIC CARCINOMA METASTATIC
     Route: 065
     Dates: start: 201304, end: 20130806
  2. GEMZAR [Concomitant]
     Indication: PANCREATIC CARCINOMA METASTATIC
     Route: 065

REACTIONS (3)
  - Asthenia [Recovered/Resolved]
  - Neuropathy peripheral [Recovered/Resolved]
  - Nausea [Recovered/Resolved]
